FAERS Safety Report 12816255 (Version 2)
Quarter: 2016Q4

REPORT INFORMATION
  Report Type: Report from Study
  Country: US (occurrence: US)
  Receive Date: 20161005
  Receipt Date: 20161005
  Transmission Date: 20170207
  Serious: Yes (Death, Other)
  Sender: FDA-Public Use
  Company Number: US-REGENERON PHARMACEUTICALS, INC.-2016-21927

PATIENT

DRUGS (1)
  1. EYLEA [Suspect]
     Active Substance: AFLIBERCEPT
     Indication: NEOVASCULAR AGE-RELATED MACULAR DEGENERATION
     Dosage: UNK, UNK, RECEIVED 19 INJECTIONS WITH A TOTAL OF 38 DOSES
     Dates: start: 20140109, end: 20160824

REACTIONS (2)
  - Respiratory distress [Fatal]
  - Thrombosis [Fatal]

NARRATIVE: CASE EVENT DATE: 20160901
